FAERS Safety Report 8202065-8 (Version None)
Quarter: 2012Q1

REPORT INFORMATION
  Report Type: 
  Country: None (occurrence: None)
  Receive Date: 20120312
  Receipt Date: 20120301
  Transmission Date: 20120608
  Serious: Yes (Hospitalization)
  Sender: FDA-Public Use
  Company Number: RU-MERCK-1202USA03058

PATIENT

DRUGS (1)
  1. PRIMAXIN [Suspect]
     Indication: INTRAUTERINE INFECTION
     Route: 065

REACTIONS (2)
  - CONDITION AGGRAVATED [None]
  - INTRAUTERINE INFECTION [None]
